FAERS Safety Report 21782379 (Version 2)
Quarter: 2024Q3

REPORT INFORMATION
  Report Type: Report from Study
  Country: US (occurrence: US)
  Receive Date: 20221227
  Receipt Date: 20240806
  Transmission Date: 20241017
  Serious: Yes (Hospitalization, Other)
  Sender: RECORDATI
  Company Number: US-RECORDATI-2022006989

PATIENT

DRUGS (2)
  1. ISTURISA [Suspect]
     Active Substance: OSILODROSTAT PHOSPHATE
     Indication: Cushing^s syndrome
     Dosage: 8 MILLIGRAM, BID (5MG STRENGTH TABLETS)
     Route: 048
     Dates: start: 20220811
  2. ISTURISA [Suspect]
     Active Substance: OSILODROSTAT PHOSPHATE
     Dosage: 8 MILLIGRAM, BID (1MG STRENGTH TABLETS)
     Route: 048
     Dates: start: 20220811

REACTIONS (1)
  - Laboratory test abnormal [Unknown]

NARRATIVE: CASE EVENT DATE: 20220101
